FAERS Safety Report 23943810 (Version 1)
Quarter: 2024Q2

REPORT INFORMATION
  Report Type: Report from Study
  Country: MX (occurrence: MX)
  Receive Date: 20240606
  Receipt Date: 20240606
  Transmission Date: 20240716
  Serious: Yes (Other)
  Sender: FDA-Public Use
  Company Number: MX-002147023-PHHY2013MX064028

PATIENT
  Age: 51 Year
  Sex: Female

DRUGS (4)
  1. TEGRETOL [Suspect]
     Active Substance: CARBAMAZEPINE
     Indication: Seizure
     Dosage: 2 DF (X200 MG) DAILY
     Route: 048
     Dates: start: 19970101
  2. TEGRETOL [Suspect]
     Active Substance: CARBAMAZEPINE
     Dosage: 3 DF (UKN MG) DAILY
     Route: 065
  3. TEGRETOL [Suspect]
     Active Substance: CARBAMAZEPINE
     Dosage: 200 MG, QD (2 TABLETS)
     Route: 048
     Dates: start: 2019
  4. TEGRETOL [Suspect]
     Active Substance: CARBAMAZEPINE
     Dosage: 2.5 DOSAGE FORM, QD (2 AND A 1/2 TABLET)
     Route: 065

REACTIONS (3)
  - Seizure [Recovered/Resolved]
  - Seizure [Not Recovered/Not Resolved]
  - Off label use [Unknown]

NARRATIVE: CASE EVENT DATE: 20240201
